FAERS Safety Report 4450204-7 (Version None)
Quarter: 2004Q3

REPORT INFORMATION
  Report Type: 
  Country: None (occurrence: None)
  Receive Date: 20040915
  Receipt Date: 20040830
  Transmission Date: 20050211
  Serious: Yes (Hospitalization)
  Sender: FDA-Public Use
  Company Number: 200472

PATIENT
  Age: 35 Year
  Sex: Male
  Weight: 103.8737 kg

DRUGS (1)
  1. AVONEX [Suspect]
     Indication: MULTIPLE SCLEROSIS
     Dosage: 30 MCG QW IM
     Route: 030
     Dates: start: 20040130

REACTIONS (5)
  - ALANINE AMINOTRANSFERASE INCREASED [None]
  - APPENDICECTOMY [None]
  - CONSTIPATION [None]
  - LUMBAR PUNCTURE HEADACHE [None]
  - MULTIPLE SCLEROSIS [None]
